FAERS Safety Report 17620908 (Version 2)
Quarter: 2020Q2

REPORT INFORMATION
  Report Type: Spontaneous
  Country: JP (occurrence: JP)
  Receive Date: 20200403
  Receipt Date: 20200408
  Transmission Date: 20200713
  Serious: Yes (Life-Threatening, Hospitalization)
  Sender: FDA-Public Use
  Company Number: JP-PFIZER INC-2020134664

PATIENT
  Age: 37 Year
  Sex: Male

DRUGS (2)
  1. MINOMYCIN 50MG [Suspect]
     Active Substance: MINOCYCLINE HYDROCHLORIDE
     Indication: WOUND
     Dosage: 50 MG, DAILY
     Route: 048
     Dates: start: 20200314, end: 202003
  2. MINOMYCIN 50MG [Suspect]
     Active Substance: MINOCYCLINE HYDROCHLORIDE
     Indication: ACNE

REACTIONS (1)
  - Dyspnoea [Recovered/Resolved]

NARRATIVE: CASE EVENT DATE: 20200314
